FAERS Safety Report 10173466 (Version 1)
Quarter: 2014Q2

REPORT INFORMATION
  Report Type: Spontaneous
  Country: GB (occurrence: GB)
  Receive Date: 20140515
  Receipt Date: 20140515
  Transmission Date: 20141212
  Serious: Yes (Death)
  Sender: FDA-Public Use
  Company Number: GB-TEVA-481239ISR

PATIENT
  Age: 12 Day
  Sex: Male

DRUGS (1)
  1. DIAZEPAM [Suspect]
     Route: 065

REACTIONS (1)
  - Sudden infant death syndrome [Fatal]
